FAERS Safety Report 14394043 (Version 1)
Quarter: 2018Q1

REPORT INFORMATION
  Report Type: Spontaneous
  Country: US (occurrence: US)
  Receive Date: 20180116
  Receipt Date: 20180116
  Transmission Date: 20180509
  Serious: No
  Sender: FDA-Public Use
  Company Number: US-REGENERON PHARMACEUTICALS, INC.-2017-25848

PATIENT

DRUGS (2)
  1. EYLEA [Suspect]
     Active Substance: AFLIBERCEPT
     Indication: NEOVASCULAR AGE-RELATED MACULAR DEGENERATION
     Dosage: BOTH EYES
     Dates: start: 201504
  2. EYLEA [Suspect]
     Active Substance: AFLIBERCEPT
     Dosage: LAST DOSE, LEFT EYE
     Dates: start: 20171031, end: 20171031

REACTIONS (2)
  - Product packaging quantity issue [Unknown]
  - Underdose [Unknown]
